FAERS Safety Report 23574971 (Version 3)
Quarter: 2024Q1

REPORT INFORMATION
  Report Type: Spontaneous
  Country: US (occurrence: US)
  Receive Date: 20240228
  Receipt Date: 20240320
  Transmission Date: 20240410
  Serious: No
  Sender: FDA-Public Use
  Company Number: US-SANOFI-01954883

PATIENT
  Age: 87 Year
  Sex: Male

DRUGS (1)
  1. INSULIN GLARGINE [Suspect]
     Active Substance: INSULIN GLARGINE
     Indication: Diabetes mellitus
     Dosage: BLOOD GLUCOSE GETS UP TO 200, GIVES HIM 35 UNITS, AND IF IT GETS UP TO 180-190, GIVES HIM 30 UNITS,

REACTIONS (2)
  - Injection site pain [Unknown]
  - Device issue [Unknown]
